FAERS Safety Report 6429142-6 (Version None)
Quarter: 2009Q4

REPORT INFORMATION
  Report Type: 
  Country: None (occurrence: None)
  Receive Date: 20091105
  Receipt Date: 20091026
  Transmission Date: 20100525
  Serious: Yes (Hospitalization, Other)
  Sender: FDA-Public Use
  Company Number: US-ELI_LILLY_AND_COMPANY-US200911000115

PATIENT
  Sex: Female

DRUGS (5)
  1. FORTEO [Suspect]
     Dosage: UNK, UNK
     Dates: start: 20071201
  2. FORTEO [Suspect]
  3. SINGULAIR [Concomitant]
  4. OMEPRAZOLE [Concomitant]
  5. VALTREX [Concomitant]

REACTIONS (6)
  - ARTHRALGIA [None]
  - BLOOD DISORDER [None]
  - DENTAL CARIES [None]
  - KNEE ARTHROPLASTY [None]
  - SENSITIVITY OF TEETH [None]
  - TOOTHACHE [None]
